FAERS Safety Report 25657900 (Version 1)
Quarter: 2025Q3

REPORT INFORMATION
  Report Type: Report from Study
  Country: US (occurrence: US)
  Receive Date: 20250808
  Receipt Date: 20250808
  Transmission Date: 20251020
  Serious: Yes (Hospitalization, Other)
  Sender: SUNOVION
  Company Number: US-SUMITOMO PHARMA SWITZERLAND GMBH-2024SPA003462

PATIENT
  Age: 85 Year
  Sex: Male

DRUGS (24)
  1. ORGOVYX [Suspect]
     Active Substance: RELUGOLIX
     Indication: Prostate cancer
     Route: 048
  2. ORGOVYX [Suspect]
     Active Substance: RELUGOLIX
     Route: 048
  3. ALPRAZOLAM [Concomitant]
     Active Substance: ALPRAZOLAM
  4. ASPIRIN [Concomitant]
     Active Substance: ASPIRIN
  5. ATORVASTATIN [Concomitant]
     Active Substance: ATORVASTATIN
  6. BICALUTAMIDE [Concomitant]
     Active Substance: BICALUTAMIDE
  7. BUSPIRONE [Concomitant]
     Active Substance: BUSPIRONE HYDROCHLORIDE
  8. CALCIUM CITRATE [Concomitant]
     Active Substance: CALCIUM CITRATE
  9. CASODEX [Concomitant]
     Active Substance: BICALUTAMIDE
  10. DOCUSATE CALCIUM [Concomitant]
     Active Substance: DOCUSATE CALCIUM
  11. DRONABINOL [Concomitant]
     Active Substance: DRONABINOL
  12. DULOXETINE [Concomitant]
     Active Substance: DULOXETINE
  13. ISOSORBIDE DINITRATE [Concomitant]
     Active Substance: ISOSORBIDE DINITRATE
  14. LINZESS [Concomitant]
     Active Substance: LINACLOTIDE
  15. MELOXICAM [Concomitant]
     Active Substance: MELOXICAM
  16. METOPROLOL SUCCINATE [Concomitant]
     Active Substance: METOPROLOL SUCCINATE
  17. MORPHINE SULFATE [Concomitant]
     Active Substance: MORPHINE SULFATE
  18. NITROSTAT [Concomitant]
     Active Substance: NITROGLYCERIN
     Route: 060
  19. OMEPRAZOLE [Concomitant]
     Active Substance: OMEPRAZOLE
  20. ONDANSETRON [Concomitant]
     Active Substance: ONDANSETRON
  21. PROPRANOLOL HYDROCHLORIDE [Concomitant]
     Active Substance: PROPRANOLOL HYDROCHLORIDE
  22. PROVENTIL HFA [Concomitant]
     Active Substance: ALBUTEROL SULFATE
  23. TAMSULOSIN [Concomitant]
     Active Substance: TAMSULOSIN
  24. VITAMIN D [Concomitant]
     Active Substance: VITAMIN D NOS

REACTIONS (5)
  - Cardiac septal defect repair [Recovering/Resolving]
  - Vomiting [Unknown]
  - Nausea [Not Recovered/Not Resolved]
  - Incorrect dose administered [Unknown]
  - Inappropriate schedule of product administration [Unknown]
